FAERS Safety Report 7415389-9 (Version None)
Quarter: 2011Q2

REPORT INFORMATION
  Report Type: 
  Country: None (occurrence: None)
  Receive Date: 20110414
  Receipt Date: 20110406
  Transmission Date: 20111010
  Serious: Yes (Other)
  Sender: FDA-Public Use
  Company Number: B0711838A

PATIENT
  Sex: Male
  Weight: 7.5 kg

DRUGS (1)
  1. VENTOLIN [Suspect]
     Indication: COUGH
     Dosage: 1.5ML SEE DOSAGE TEXT
     Route: 065
     Dates: start: 20110313, end: 20110314

REACTIONS (3)
  - ERYTHEMA [None]
  - RECTAL HAEMORRHAGE [None]
  - DRUG ADMINISTRATION ERROR [None]
